FAERS Safety Report 4373101-4 (Version None)
Quarter: 2004Q2

REPORT INFORMATION
  Report Type: 
  Country: None (occurrence: None)
  Receive Date: 20040603
  Receipt Date: 20040520
  Transmission Date: 20050107
  Serious: Yes (Death)
  Sender: FDA-Public Use
  Company Number: BIVUS040034

PATIENT
  Age: 75 Year
  Sex: Male
  Weight: 72.4 kg

DRUGS (15)
  1. ANGIOMAX [Suspect]
     Indication: ANGINA PECTORIS
     Dosage: 72 MG, BOLUS, IV BOLUS;  26.3 ML, HR INF, IV HR INF
     Route: 040
     Dates: start: 20040416, end: 20040416
  2. ANGIOMAX [Suspect]
     Indication: ANTICOAGULANT THERAPY
     Dosage: 72 MG, BOLUS, IV BOLUS;  26.3 ML, HR INF, IV HR INF
     Route: 040
     Dates: start: 20040416, end: 20040416
  3. ANGIOMAX [Suspect]
     Indication: CORONARY ANGIOPLASTY
     Dosage: 72 MG, BOLUS, IV BOLUS;  26.3 ML, HR INF, IV HR INF
     Route: 040
     Dates: start: 20040416, end: 20040416
  4. ANGIOMAX [Suspect]
     Indication: ANGINA PECTORIS
     Dosage: 72 MG, BOLUS, IV BOLUS;  26.3 ML, HR INF, IV HR INF
     Route: 040
     Dates: start: 20040416, end: 20040416
  5. ANGIOMAX [Suspect]
     Indication: ANTICOAGULANT THERAPY
     Dosage: 72 MG, BOLUS, IV BOLUS;  26.3 ML, HR INF, IV HR INF
     Route: 040
     Dates: start: 20040416, end: 20040416
  6. ANGIOMAX [Suspect]
     Indication: CORONARY ANGIOPLASTY
     Dosage: 72 MG, BOLUS, IV BOLUS;  26.3 ML, HR INF, IV HR INF
     Route: 040
     Dates: start: 20040416, end: 20040416
  7. INTEGRILIN [Suspect]
     Indication: CORONARY ANGIOPLASTY
     Dosage: 13.2 MG, BOLUS, IV BOLUS;  12 ML, HR INF, IV HR INF;  13.2 MG, BOLUS, IV BOLUS
     Route: 040
     Dates: start: 20040416, end: 20040416
  8. INTEGRILIN [Suspect]
     Indication: CORONARY ANGIOPLASTY
     Dosage: 13.2 MG, BOLUS, IV BOLUS;  12 ML, HR INF, IV HR INF;  13.2 MG, BOLUS, IV BOLUS
     Route: 040
     Dates: start: 20040416, end: 20040416
  9. INTEGRILIN [Suspect]
     Indication: CORONARY ANGIOPLASTY
     Dosage: 13.2 MG, BOLUS, IV BOLUS;  12 ML, HR INF, IV HR INF;  13.2 MG, BOLUS, IV BOLUS
     Route: 040
     Dates: start: 20040416, end: 20040416
  10. PLAVIX [Suspect]
     Indication: CORONARY ANGIOPLASTY
     Dosage: 300 MG, ONCE, ORAL;  75 MG, ONCE,
     Route: 048
     Dates: start: 20040415, end: 20040415
  11. PLAVIX [Suspect]
     Indication: CORONARY ANGIOPLASTY
     Dosage: 300 MG, ONCE, ORAL;  75 MG, ONCE,
     Route: 048
     Dates: start: 20040416, end: 20040416
  12. ASPIRIN [Suspect]
     Indication: CORONARY ARTERY DISEASE
     Dosage: 81 MG, QD, ORAL
     Route: 048
  13. ZOCOR [Concomitant]
  14. TOPROL-XL [Concomitant]
  15. LISINOPRIL [Concomitant]

REACTIONS (4)
  - AGGRESSION [None]
  - AGITATION [None]
  - CARDIO-RESPIRATORY ARREST [None]
  - HAEMORRHAGE INTRACRANIAL [None]
